FAERS Safety Report 7433133-6 (Version None)
Quarter: 2011Q2

REPORT INFORMATION
  Report Type: 
  Country: None (occurrence: None)
  Receive Date: 20110422
  Receipt Date: 20110411
  Transmission Date: 20111010
  Serious: Yes (Death)
  Sender: FDA-Public Use
  Company Number: MX-JNJFOC-20110405362

PATIENT
  Sex: Male

DRUGS (1)
  1. INFLIXIMAB, RECOMBINANT [Suspect]
     Indication: PSORIASIS
     Dosage: 2 INFUSIONS ON UNSPECIFIED DATES
     Route: 042

REACTIONS (4)
  - ARTHRALGIA [None]
  - LYMPHOMA [None]
  - FATIGUE [None]
  - MYALGIA [None]
